FAERS Safety Report 13873997 (Version 1)
Quarter: 2017Q3

REPORT INFORMATION
  Report Type: Spontaneous
  Country: GB (occurrence: GB)
  Receive Date: 20170816
  Receipt Date: 20170816
  Transmission Date: 20171127
  Serious: Yes (Disabling)
  Sender: FDA-Public Use
  Company Number: GB-TEVA-795246ACC

PATIENT
  Age: 72 Year
  Sex: Female
  Weight: 65.77 kg

DRUGS (7)
  1. NAPROXEN. [Concomitant]
     Active Substance: NAPROXEN
  2. AMOXICILLIN W/CLAVULANIC ACID [Suspect]
     Active Substance: AMOXICILLIN\CLAVULANIC ACID
     Indication: WOUND INFECTION
     Dosage: 500MG/125MG
     Route: 048
     Dates: start: 20170710, end: 20170710
  3. ALLOPURINOL. [Interacting]
     Active Substance: ALLOPURINOL
  4. ALFACALCIDOL [Concomitant]
     Active Substance: ALFACALCIDOL
  5. THYROXINE [Concomitant]
     Active Substance: LEVOTHYROXINE
  6. OMEPRAZOLE. [Concomitant]
     Active Substance: OMEPRAZOLE
  7. MESALAZINE [Concomitant]
     Active Substance: MESALAMINE

REACTIONS (8)
  - Diarrhoea [Recovered/Resolved]
  - Colitis ulcerative [Recovered/Resolved]
  - Neck pain [Not Recovered/Not Resolved]
  - Vomiting [Recovered/Resolved]
  - Arthralgia [Not Recovered/Not Resolved]
  - Back pain [Not Recovered/Not Resolved]
  - Musculoskeletal pain [Not Recovered/Not Resolved]
  - Drug interaction [Unknown]

NARRATIVE: CASE EVENT DATE: 20170710
